FAERS Safety Report 15859316 (Version 4)
Quarter: 2019Q1

REPORT INFORMATION
  Report Type: Spontaneous
  Country: US (occurrence: US)
  Receive Date: 20190123
  Receipt Date: 20190211
  Transmission Date: 20190417
  Serious: Yes (Hospitalization, Other)
  Sender: FDA-Public Use
  Company Number: US-ALLERGAN-1900471US

PATIENT
  Age: 36 Year
  Sex: Male

DRUGS (3)
  1. VIBERZI [Suspect]
     Active Substance: ELUXADOLINE
     Indication: PRODUCT USED FOR UNKNOWN INDICATION
  2. BYSTOLIC [Concomitant]
     Active Substance: NEBIVOLOL HYDROCHLORIDE
     Indication: HYPERTENSION
     Dosage: UNK
     Route: 048
  3. VIBERZI [Suspect]
     Active Substance: ELUXADOLINE
     Indication: DIARRHOEA
     Dosage: 75 MG, UNK
     Route: 048
     Dates: start: 201610, end: 201610

REACTIONS (13)
  - Abdominal discomfort [Recovered/Resolved]
  - Pancreatitis acute [Recovered/Resolved]
  - Pallor [Recovered/Resolved]
  - Weight decreased [Unknown]
  - Off label use [Unknown]
  - Inappropriate schedule of product administration [Unknown]
  - Hyperhidrosis [Recovered/Resolved]
  - Muscle spasms [Unknown]
  - Pancreatolithiasis [Recovered/Resolved]
  - Abdominal pain upper [Recovered/Resolved]
  - Malaise [Recovered/Resolved]
  - Pain [Recovered/Resolved]
  - Abdominal rigidity [Recovered/Resolved]

NARRATIVE: CASE EVENT DATE: 2016
